FAERS Safety Report 14815971 (Version 2)
Quarter: 2018Q2

REPORT INFORMATION
  Report Type: Report from Study
  Country: FR (occurrence: FR)
  Receive Date: 20180426
  Receipt Date: 20180504
  Transmission Date: 20180711
  Serious: Yes (Other)
  Sender: FDA-Public Use
  Company Number: FR-PFIZER INC-2018157786

PATIENT
  Age: 81 Year
  Sex: Male
  Weight: 77 kg

DRUGS (3)
  1. DUROGESIC [Concomitant]
     Active Substance: FENTANYL
     Indication: BACK PAIN
     Dosage: 75 UG, UNK
     Route: 058
     Dates: start: 201801
  2. DOLIPRANE [Concomitant]
     Active Substance: ACETAMINOPHEN
     Indication: BACK PAIN
     Dosage: 1 G, AS NEEDED
     Route: 048
     Dates: start: 201801
  3. AXITINIB [Suspect]
     Active Substance: AXITINIB
     Indication: PAPILLARY RENAL CELL CARCINOMA
     Dosage: 4 MG, DAILY
     Route: 048
     Dates: start: 20160923, end: 20180212

REACTIONS (1)
  - Muscle spasms [Not Recovered/Not Resolved]

NARRATIVE: CASE EVENT DATE: 201801
